FAERS Safety Report 7273272-6 (Version None)
Quarter: 2011Q1

REPORT INFORMATION
  Report Type: 
  Country: None (occurrence: None)
  Receive Date: 20110203
  Receipt Date: 20101227
  Transmission Date: 20110831
  Serious: No
  Sender: FDA-Public Use
  Company Number: US-ABBOTT-10P-163-0694502-00

PATIENT
  Sex: Female
  Weight: 59.02 kg

DRUGS (3)
  1. SYNTHROID [Suspect]
     Indication: THYROIDECTOMY
     Dates: start: 20101001
  2. SYNTHROID [Suspect]
     Indication: THYROID DISORDER
  3. CLONAZEPAM [Concomitant]
     Indication: INSOMNIA
     Dosage: 1.5 MG DAILY

REACTIONS (1)
  - HYPOVENTILATION [None]
